FAERS Safety Report 5591383-8 (Version None)
Quarter: 2008Q1

REPORT INFORMATION
  Report Type: 
  Country: None (occurrence: None)
  Receive Date: 20080111
  Receipt Date: 20080111
  Transmission Date: 20080703
  Serious: Yes (Other)
  Sender: FDA-Public Use
  Company Number: None

PATIENT
  Age: 47 Year
  Sex: Male
  Weight: 83.0083 kg

DRUGS (1)
  1. CIPROFLOXACIN [Suspect]
     Indication: PROSTATITIS
     Dosage: 1 TAB  BID   PO
     Route: 048
     Dates: start: 20071214, end: 20071224

REACTIONS (3)
  - HYPOACUSIS [None]
  - NYSTAGMUS [None]
  - VERTIGO POSITIONAL [None]
